FAERS Safety Report 6614338-0 (Version None)
Quarter: 2010Q1

REPORT INFORMATION
  Report Type: 
  Country: None (occurrence: None)
  Receive Date: 20100304
  Receipt Date: 20100223
  Transmission Date: 20100710
  Serious: Yes (Other)
  Sender: FDA-Public Use
  Company Number: PHHY2010DE05782

PATIENT
  Sex: Female

DRUGS (1)
  1. EXTAVIA [Suspect]
     Indication: MULTIPLE SCLEROSIS
     Dosage: 250 UG DAILY
     Route: 058
     Dates: start: 20090504

REACTIONS (6)
  - ARRHYTHMIA [None]
  - CHILLS [None]
  - EAR DISCOMFORT [None]
  - EXTRASYSTOLES [None]
  - HYPERHIDROSIS [None]
  - TACHYCARDIA [None]
